FAERS Safety Report 8525708-8 (Version None)
Quarter: 2012Q3

REPORT INFORMATION
  Report Type: 
  Country: None (occurrence: None)
  Receive Date: 20120720
  Receipt Date: 20120711
  Transmission Date: 20120928
  Serious: Yes (Life-Threatening, Hospitalization)
  Sender: FDA-Public Use
  Company Number: DE-009507513-1206DEU00028

PATIENT

DRUGS (4)
  1. SITAGLIPTIN PHOSPHATE [Suspect]
     Indication: POLYARTHRITIS
     Dosage: 100 MG, QD
     Route: 048
     Dates: start: 20090901, end: 20120401
  2. PANTOPRAZOLE [Concomitant]
     Indication: GASTROOESOPHAGEAL REFLUX DISEASE
     Dosage: 40 MG, BID
     Route: 048
     Dates: start: 20080501, end: 20120501
  3. JANUVIA [Suspect]
     Indication: TYPE 2 DIABETES MELLITUS
     Dosage: 100 MG, QD
     Route: 048
     Dates: start: 20090901, end: 20120401
  4. CELEBREX [Concomitant]
     Indication: POLYARTHRITIS
     Dosage: 200 MG, QD
     Route: 048
     Dates: start: 20100901, end: 20120501

REACTIONS (2)
  - OVERDOSE [None]
  - PANCREATIC CARCINOMA [None]
